FAERS Safety Report 16114595 (Version 1)
Quarter: 2019Q1

REPORT INFORMATION
  Report Type: Spontaneous
  Country: GB (occurrence: GB)
  Receive Date: 20190325
  Receipt Date: 20190325
  Transmission Date: 20190418
  Serious: Yes (Other)
  Sender: FDA-Public Use
  Company Number: GB-TEVA-2019-GB-1028336

PATIENT
  Age: 54 Year
  Sex: Female
  Weight: 70 kg

DRUGS (1)
  1. TRIMETHOPRIM. [Suspect]
     Active Substance: TRIMETHOPRIM
     Route: 065
     Dates: start: 20181112, end: 20181113

REACTIONS (4)
  - Lip swelling [Recovered/Resolved]
  - Pruritus [Unknown]
  - Swollen tongue [Recovered/Resolved]
  - Wheezing [Unknown]

NARRATIVE: CASE EVENT DATE: 20181113
